FAERS Safety Report 26153157 (Version 1)
Quarter: 2025Q4

REPORT INFORMATION
  Report Type: Spontaneous
  Country: US (occurrence: US)
  Receive Date: 20251214
  Receipt Date: 20251214
  Transmission Date: 20260117
  Serious: No
  Sender: Atnahs Healthcare
  Company Number: US-ATNAHS-2025-PMNV-US000462

PATIENT

DRUGS (27)
  1. DIAZEPAM [Suspect]
     Active Substance: DIAZEPAM
     Indication: Product used for unknown indication
     Dosage: 5 MG, TID
     Route: 048
  2. RITUXAN [Suspect]
     Active Substance: RITUXIMAB
     Indication: Systemic lupus erythematosus
     Dosage: 1000 MG, ONCE DAY 1 DAY DAY 15 THEN EVERY 6 MONTHS
     Route: 042
     Dates: start: 20191008
  3. RITUXAN [Suspect]
     Active Substance: RITUXIMAB
     Indication: Stiff person syndrome
     Dosage: 1000 MG, ONCE DAY 1 DAY DAY 15 THEN EVERY 6 MONTHS
     Route: 042
     Dates: start: 20191022
  4. RITUXAN [Suspect]
     Active Substance: RITUXIMAB
     Indication: Chronic cutaneous lupus erythematosus
     Dosage: 1000 MG, ONCE DAY 1 DAY DAY 15 THEN EVERY 6 MONTHS
     Route: 042
     Dates: start: 20220826
  5. RITUXAN [Suspect]
     Active Substance: RITUXIMAB
     Dosage: 1000 MG, ONCE DAY 1 DAY DAY 15 THEN EVERY 6 MONTHS
     Route: 042
     Dates: start: 20220909
  6. RITUXAN [Suspect]
     Active Substance: RITUXIMAB
     Dosage: 1000 MG, ONCE DAY 1 DAY DAY 15 THEN EVERY 6 MONTHS
     Route: 042
     Dates: start: 20230303
  7. RITUXAN [Suspect]
     Active Substance: RITUXIMAB
     Dosage: 1000 MG, ONCE DAY 1 DAY DAY 15 THEN EVERY 6 MONTHS
     Route: 042
     Dates: start: 20230317
  8. RITUXAN [Suspect]
     Active Substance: RITUXIMAB
     Dosage: 1000 MG, ONCE DAY 1 DAY DAY 15 THEN EVERY 6 MONTHS
     Route: 042
     Dates: start: 20230908
  9. RITUXAN [Suspect]
     Active Substance: RITUXIMAB
     Dosage: 1000 MG, ONCE DAY 1 DAY DAY 15 THEN EVERY 6 MONTHS
     Route: 042
     Dates: start: 20230922
  10. RITUXAN [Suspect]
     Active Substance: RITUXIMAB
     Dosage: 1000 MG, ONCE DAY 1 DAY DAY 15 THEN EVERY 6 MONTHS
     Route: 042
     Dates: start: 20240308
  11. RITUXAN [Suspect]
     Active Substance: RITUXIMAB
     Dosage: 1000 MG, ONCE DAY 1 DAY DAY 15 THEN EVERY 6 MONTHS
     Route: 042
     Dates: start: 20240322
  12. KLONOPIN [Suspect]
     Active Substance: CLONAZEPAM
     Indication: Product used for unknown indication
     Dosage: 1 MG, TID
     Route: 048
  13. BACLOFEN [Concomitant]
     Active Substance: BACLOFEN
     Indication: Product used for unknown indication
     Dosage: 20 MG, QID WHILE AWAKE
     Route: 048
  14. ZOFENOPRIL [Concomitant]
     Active Substance: ZOFENOPRIL
     Indication: Product used for unknown indication
     Dosage: 4 MG, DAILY
     Route: 048
  15. VITAMIN C [Concomitant]
     Active Substance: ASCORBIC ACID
     Indication: Product used for unknown indication
     Dosage: 2 P.O. ONCE A DAY =2000 MG
     Route: 048
  16. VITAMIN D3 [Concomitant]
     Active Substance: CHOLECALCIFEROL
     Indication: Product used for unknown indication
     Dosage: 2000 UNIT , DAILY
     Route: 048
  17. FLUOXETINE [Concomitant]
     Active Substance: FLUOXETINE HYDROCHLORIDE
     Indication: Product used for unknown indication
     Dosage: 10 MG, 4 TAB DAILY
     Route: 065
  18. IVIGLOB EX [Concomitant]
     Active Substance: HUMAN IMMUNOGLOBULIN G
     Indication: Product used for unknown indication
     Dosage: 1 IN 1 WEEK
     Route: 042
  19. LOTRISONE [Concomitant]
     Active Substance: BETAMETHASONE DIPROPIONATE\CLOTRIMAZOLE
     Indication: Skin reaction
     Dosage: APPLY BID FOR 1 WEEK
     Route: 061
  20. HYDROXYCHLOROQUINE [Concomitant]
     Active Substance: HYDROXYCHLOROQUINE
     Indication: Product used for unknown indication
     Dosage: 200 MG, DAILY, 1/2 TAB P.O Q DAY
     Route: 048
  21. LEUCOVORIN [Concomitant]
     Active Substance: LEUCOVORIN\LEUCOVORIN CALCIUM
     Indication: Product used for unknown indication
     Dosage: ONE TAB 24 HR AFTER METHOTREXATE DOSE
     Route: 048
  22. METHOTREXATE SODIUM [Concomitant]
     Active Substance: METHOTREXATE SODIUM
     Indication: Product used for unknown indication
     Dosage: 6 TABS ALL AT ONCE, PO ONCE WEEKLY OR AS DIRECTED
     Route: 048
  23. PANTOPRAZOLE [Concomitant]
     Active Substance: PANTOPRAZOLE
     Indication: Product used for unknown indication
     Dosage: 1 P.O. ONCE A DAY IN THE MORNING
     Route: 048
  24. PREDNISONE [Concomitant]
     Active Substance: PREDNISONE
     Indication: Product used for unknown indication
     Dosage: 4 TAB P.O.Q AM OR AS DIRECTED
     Route: 048
  25. PREDNISONE [Concomitant]
     Active Substance: PREDNISONE
     Dosage: UNK 2 TAB P.O.Q AM OR AS DIRECTED
  26. FOLIC ACID [Concomitant]
     Active Substance: FOLIC ACID
     Indication: Product used for unknown indication
     Dosage: 5 TAB DAILY
  27. FOSAMAX [Concomitant]
     Active Substance: ALENDRONATE SODIUM
     Indication: Product used for unknown indication
     Dosage: ONCE A WEEK AS DIRECTED

REACTIONS (6)
  - Off label use [Unknown]
  - Vitamin B12 deficiency [Unknown]
  - Neutropenia [Unknown]
  - Depression [Unknown]
  - Myasthenia gravis [Unknown]
  - Anaemia [Unknown]
